FAERS Safety Report 20169695 (Version 1)
Quarter: 2021Q4

REPORT INFORMATION
  Report Type: Spontaneous
  Country: US (occurrence: None)
  Receive Date: 20211209
  Receipt Date: 20211209
  Transmission Date: 20220304
  Serious: No
  Sender: FDA-Public Use
  Company Number: None

PATIENT
  Age: 69 Year
  Sex: Female

DRUGS (1)
  1. DALFAMPRIDINE [Suspect]
     Active Substance: DALFAMPRIDINE
     Indication: Multiple sclerosis
     Dosage: FREQUENCY : TWICE A DAY;?
     Route: 048
     Dates: start: 20180725

REACTIONS (6)
  - Pyrexia [None]
  - Nausea [None]
  - Feeling abnormal [None]
  - Illness [None]
  - Coronavirus infection [None]
  - Therapy interrupted [None]

NARRATIVE: CASE EVENT DATE: 20211028
